FAERS Safety Report 5135874-2 (Version None)
Quarter: 2006Q4

REPORT INFORMATION
  Report Type: 
  Country: None (occurrence: None)
  Receive Date: 20061020
  Receipt Date: 20061017
  Transmission Date: 20070319
  Serious: Yes (Other)
  Sender: FDA-Public Use
  Company Number: ZYD-AE-06-062

PATIENT
  Age: 37 Year
  Sex: Female

DRUGS (4)
  1. RIBAVIRIN [Suspect]
     Dosage: 600MG - BID - ORAL
     Route: 048
     Dates: start: 20060908
  2. PEGASYS [Suspect]
     Dosage: 180MCG-1XW - SQ
     Route: 058
     Dates: start: 20060908
  3. ROBITUSSIN (FEMALE) [Concomitant]
  4. PRENATAL VITAMINS (FEMALE) [Concomitant]

REACTIONS (4)
  - ACCIDENTAL EXPOSURE [None]
  - NASOPHARYNGITIS [None]
  - PREGNANCY OF PARTNER [None]
  - TRANSMISSION OF DRUG VIA SEMEN [None]
